FAERS Safety Report 23335445 (Version 1)
Quarter: 2023Q4

REPORT INFORMATION
  Report Type: Report from Study
  Country: CN (occurrence: CN)
  Receive Date: 20231225
  Receipt Date: 20231225
  Transmission Date: 20240109
  Serious: Yes (Death)
  Sender: FDA-Public Use
  Company Number: CN-HUTCHMED LIMITED-HMP2023CN02022

PATIENT
  Age: 68 Year
  Sex: Female

DRUGS (1)
  1. FRUQUINTINIB [Suspect]
     Active Substance: FRUQUINTINIB
     Indication: Gastric cancer
     Dosage: UNK
     Route: 048

REACTIONS (2)
  - Disease progression [Fatal]
  - Off label use [Unknown]

NARRATIVE: CASE EVENT DATE: 20231101
